FAERS Safety Report 6283904-7 (Version None)
Quarter: 2009Q3

REPORT INFORMATION
  Report Type: 
  Country: None (occurrence: None)
  Receive Date: 20090722
  Receipt Date: 20090722
  Transmission Date: 20100115
  Serious: Yes (Hospitalization, Other)
  Sender: FDA-Public Use
  Company Number: None

PATIENT
  Age: 64 Year
  Sex: Male
  Weight: 45.8133 kg

DRUGS (1)
  1. RAPAMUNE [Suspect]

REACTIONS (10)
  - ASTHENIA [None]
  - BK VIRUS INFECTION [None]
  - GAIT DISTURBANCE [None]
  - HERPES ZOSTER [None]
  - INSOMNIA [None]
  - MALAISE [None]
  - NEPHROPATHY [None]
  - NIGHTMARE [None]
  - PAIN [None]
  - WEIGHT DECREASED [None]
